FAERS Safety Report 12385733 (Version 3)
Quarter: 2016Q4

REPORT INFORMATION
  Report Type: Spontaneous
  Country: US (occurrence: US)
  Receive Date: 20160519
  Receipt Date: 20161129
  Transmission Date: 20170207
  Serious: No
  Sender: FDA-Public Use
  Company Number: US-TARO-2016TAR00317

PATIENT
  Age: 48 Year
  Sex: Male
  Weight: 113.38 kg

DRUGS (14)
  1. KLOR-CON ER [Concomitant]
  2. KEVEYIS [Suspect]
     Active Substance: DICHLORPHENAMIDE
     Indication: PARALYSIS
     Dosage: 0.5 TABLETS, 2X/DAY
     Route: 048
     Dates: start: 20160325, end: 20160609
  3. HYDROCODONE [Concomitant]
     Active Substance: HYDROCODONE
     Dosage: 4 MG, 6X/DAY
  4. OXYCODONE [Concomitant]
     Active Substance: OXYCODONE
  5. TRIAMTERENE. [Concomitant]
     Active Substance: TRIAMTERENE
  6. ZOLPIDEM [Concomitant]
     Active Substance: ZOLPIDEM\ZOLPIDEM TARTRATE
  7. DULCOLAX NOS [Concomitant]
     Active Substance: BISACODYL OR DOCUSATE SODIUM
     Dosage: UNK
  8. KEVEYIS [Suspect]
     Active Substance: DICHLORPHENAMIDE
     Dosage: 50 MG, UNK
     Dates: start: 20160610
  9. MORPHINE SULFATE IR [Concomitant]
     Active Substance: MORPHINE SULFATE
     Dosage: UNK
     Dates: start: 20160408
  10. POTASSIUM CHLORIDE. [Concomitant]
     Active Substance: POTASSIUM CHLORIDE
     Dosage: 20 MEQ, UNK
  11. CLARITIN [Concomitant]
     Active Substance: LORATADINE
     Dosage: UNK, AS NEEDED
  12. PRAVASTATIN. [Concomitant]
     Active Substance: PRAVASTATIN
  13. DERILLIUM [Concomitant]
  14. AMILORIDE [Concomitant]
     Active Substance: AMILORIDE

REACTIONS (14)
  - Abdominal distension [Not Recovered/Not Resolved]
  - Confusional state [Recovered/Resolved]
  - Somnolence [Not Recovered/Not Resolved]
  - Skin tightness [Recovered/Resolved]
  - Hypotension [Recovered/Resolved]
  - Pain in extremity [Recovered/Resolved]
  - Hypoaesthesia [Recovered/Resolved]
  - Stress [Recovered/Resolved]
  - Dizziness postural [Not Recovered/Not Resolved]
  - Visual impairment [Recovered/Resolved]
  - Lethargy [Not Recovered/Not Resolved]
  - Diarrhoea [Recovered/Resolved]
  - Axillary mass [Not Recovered/Not Resolved]
  - Blood potassium decreased [Recovered/Resolved]

NARRATIVE: CASE EVENT DATE: 20160325
